FAERS Safety Report 20717823 (Version 4)
Quarter: 2022Q4

REPORT INFORMATION
  Report Type: Spontaneous
  Country: TW (occurrence: TW)
  Receive Date: 20220418
  Receipt Date: 20221102
  Transmission Date: 20230112
  Serious: Yes (Hospitalization, Other)
  Sender: FDA-Public Use
  Company Number: TW-BRISTOL-MYERS SQUIBB COMPANY-2022-021097

PATIENT
  Sex: Male
  Weight: 56 kg

DRUGS (7)
  1. NIVOLUMAB [Suspect]
     Active Substance: NIVOLUMAB
     Indication: Oesophageal carcinoma
     Dosage: IVF
     Route: 042
     Dates: start: 20211026
  2. NIVOLUMAB [Suspect]
     Active Substance: NIVOLUMAB
     Dosage: IVF
     Route: 042
     Dates: start: 20211116
  3. NIVOLUMAB [Suspect]
     Active Substance: NIVOLUMAB
     Dosage: IVF
     Route: 042
     Dates: start: 20211207
  4. NIVOLUMAB [Suspect]
     Active Substance: NIVOLUMAB
     Dosage: IVF
     Route: 042
     Dates: start: 20211228
  5. NIVOLUMAB [Suspect]
     Active Substance: NIVOLUMAB
     Route: 065
     Dates: start: 202201
  6. NIVOLUMAB [Suspect]
     Active Substance: NIVOLUMAB
     Route: 065
     Dates: start: 202202
  7. NIVOLUMAB [Suspect]
     Active Substance: NIVOLUMAB
     Route: 065
     Dates: start: 202203

REACTIONS (3)
  - Diarrhoea [Recovered/Resolved]
  - Cellulitis [Recovered/Resolved]
  - Prescribed overdose [Unknown]

NARRATIVE: CASE EVENT DATE: 20211026
